FAERS Safety Report 6326605-9 (Version None)
Quarter: 2009Q3

REPORT INFORMATION
  Report Type: 
  Country: None (occurrence: None)
  Receive Date: 20090825
  Receipt Date: 20070622
  Transmission Date: 20100115
  Serious: Yes (Hospitalization, Other)
  Sender: FDA-Public Use
  Company Number: US-ASTRAZENECA-2006UW27762

PATIENT
  Age: 470 Month
  Sex: Female
  Weight: 98.9 kg

DRUGS (14)
  1. SEROQUEL [Suspect]
     Indication: BIPOLAR DISORDER
     Dosage: 25-800 MG
     Route: 048
     Dates: start: 20030210, end: 20060314
  2. SEROQUEL [Suspect]
     Indication: SLEEP DISORDER
     Dosage: 25-800 MG
     Route: 048
     Dates: start: 20030210, end: 20060314
  3. SEROQUEL [Suspect]
     Route: 048
     Dates: start: 20030210, end: 20060314
  4. SEROQUEL [Suspect]
     Route: 048
     Dates: start: 20030210, end: 20060314
  5. ZYPREXA [Concomitant]
  6. BUSPAR [Concomitant]
  7. ABILIFY [Concomitant]
     Dates: start: 20070101, end: 20070101
  8. GEODON [Concomitant]
     Dates: start: 20070101, end: 20070101
  9. THORAZINE [Concomitant]
     Dates: start: 20060101, end: 20070101
  10. LITHIUM CARBONATE [Concomitant]
     Dates: start: 19971110
  11. NEURONTIN [Concomitant]
     Indication: PAIN
     Dosage: 300-1800 MG
     Dates: start: 20010203
  12. PLAVIX [Concomitant]
     Dates: start: 19971101
  13. SYNTHROID [Concomitant]
     Dosage: 50-88 MCG
     Dates: start: 19970101
  14. PREDNISONE [Concomitant]
     Dosage: 5-20 MG
     Dates: start: 19970101

REACTIONS (5)
  - CHEST PAIN [None]
  - DIABETES MELLITUS [None]
  - HYPERGLYCAEMIA [None]
  - NEUROLEPTIC MALIGNANT SYNDROME [None]
  - NEUROPATHY PERIPHERAL [None]
